FAERS Safety Report 9821163 (Version 2)
Quarter: 2014Q1

REPORT INFORMATION
  Report Type: Report from Study
  Country: CA (occurrence: CA)
  Receive Date: 20140116
  Receipt Date: 20140116
  Transmission Date: 20141002
  Serious: Yes (Other)
  Sender: FDA-Public Use
  Company Number: PHHY2010CA76346

PATIENT
  Sex: Female

DRUGS (9)
  1. EXJADE [Suspect]
     Indication: MYELODYSPLASTIC SYNDROME
     Dosage: 2000 MG, QD
     Route: 048
     Dates: start: 2009, end: 20140110
  2. EXJADE [Suspect]
     Dosage: 1500 MG, UNK
     Route: 048
     Dates: start: 201003
  3. EXJADE [Suspect]
     Dosage: 2000 MG PER DAY
     Route: 048
  4. EXJADE [Suspect]
     Dosage: UNK UKN, UNK
     Route: 048
     Dates: start: 201207
  5. METOPROLOL [Concomitant]
     Indication: CARDIAC DISORDER
     Dosage: 25 MG, BID
     Route: 048
  6. RAMIPRIL [Concomitant]
     Indication: CARDIAC DISORDER
     Dosage: 2.5 MG, QD
     Route: 048
  7. ASPIRIN [Concomitant]
     Dosage: 325 MG, QD
     Route: 048
  8. CENTRUM [Concomitant]
     Dosage: UNK UKN, UNK
  9. DIGOXIN [Concomitant]
     Dosage: UNK UKN, UNK

REACTIONS (2)
  - Aplasia pure red cell [Unknown]
  - Blood iron increased [Unknown]
